FAERS Safety Report 8259677-5 (Version None)
Quarter: 2012Q2

REPORT INFORMATION
  Report Type: 
  Country: None (occurrence: None)
  Receive Date: 20120404
  Receipt Date: 20120402
  Transmission Date: 20120825
  Serious: Yes (Other)
  Sender: FDA-Public Use
  Company Number: US-TEVA-331385USA

PATIENT
  Sex: Female
  Weight: 89.892 kg

DRUGS (10)
  1. LEVOTHYROXINE SODIUM [Suspect]
     Indication: THYROID DISORDER
  2. BETASERON [Suspect]
     Indication: MULTIPLE SCLEROSIS
  3. PRISTIQ [Suspect]
     Indication: DEPRESSION
     Route: 048
  4. BACLOFEN [Suspect]
     Indication: MUSCLE SPASMS
  5. TRAMADOL HCL [Suspect]
     Indication: PAIN
  6. TYLOX [Suspect]
     Indication: PAIN
     Route: 048
  7. ALPRAZOLAM [Suspect]
     Indication: ANXIETY
  8. GABAPENTIN [Suspect]
     Indication: MUSCLE SPASTICITY
  9. AMPHETAMINE AND DEXTROAMPHETAMINE SALTS [Suspect]
     Indication: ANXIETY
  10. ALPRAZOLAM [Suspect]
     Indication: HEADACHE

REACTIONS (6)
  - DYSPEPSIA [None]
  - WITHDRAWAL SYNDROME [None]
  - HEADACHE [None]
  - DRUG DETOXIFICATION [None]
  - CATATONIA [None]
  - ANXIETY [None]
